FAERS Safety Report 4293106-1 (Version None)
Quarter: 2004Q1

REPORT INFORMATION
  Report Type: 
  Country: None (occurrence: None)
  Receive Date: 20040212
  Receipt Date: 20030108
  Transmission Date: 20041129
  Serious: Yes (Other)
  Sender: FDA-Public Use
  Company Number: US-GLAXOSMITHKLINE-A0391815A

PATIENT
  Sex: Female

DRUGS (2)
  1. PAXIL [Suspect]
     Indication: DEPRESSION
  2. KLONOPIN [Concomitant]

REACTIONS (3)
  - ADVERSE EVENT [None]
  - DEPENDENCE [None]
  - DRUG WITHDRAWAL SYNDROME [None]
